FAERS Safety Report 18597242 (Version 2)
Quarter: 2020Q4

REPORT INFORMATION
  Report Type: Spontaneous
  Country: PL (occurrence: PL)
  Receive Date: 20201209
  Receipt Date: 20201222
  Transmission Date: 20210114
  Serious: Yes (Other)
  Sender: FDA-Public Use
  Company Number: PL-MYLANLABS-2020M1099793

PATIENT
  Age: 47 Year
  Sex: Female

DRUGS (14)
  1. METHOTREXATE. [Suspect]
     Active Substance: METHOTREXATE
     Indication: INVASIVE DUCTAL BREAST CARCINOMA
     Dosage: UNK
     Route: 065
     Dates: start: 201801
  2. ENDOXAN                            /00021101/ [Suspect]
     Active Substance: CYCLOPHOSPHAMIDE
     Indication: INVASIVE DUCTAL BREAST CARCINOMA
     Dosage: UNK
     Route: 065
     Dates: start: 201801
  3. PACLITAXEL. [Suspect]
     Active Substance: PACLITAXEL
     Indication: INVASIVE DUCTAL BREAST CARCINOMA
     Dosage: UNK(3 ADMINISTRATIONS)
     Route: 065
     Dates: start: 20140117
  4. KADCYLA [Suspect]
     Active Substance: ADO-TRASTUZUMAB EMTANSINE
     Dosage: 230 MILLIGRAM/KILOGRAM (AT THE TIME OF THE EVENTS)
     Route: 042
  5. VINORELBINE [Suspect]
     Active Substance: VINORELBINE TARTRATE
     Indication: INVASIVE DUCTAL BREAST CARCINOMA
     Dosage: 4 CYCLES
     Route: 048
  6. KADCYLA [Suspect]
     Active Substance: ADO-TRASTUZUMAB EMTANSINE
     Indication: INVASIVE DUCTAL BREAST CARCINOMA
     Dosage: UNK, CYCLE(17 CYCLES RECEIVED)
     Route: 042
     Dates: start: 20191105
  7. TRASTUZUMAB. [Suspect]
     Active Substance: TRASTUZUMAB
     Dosage: UNK UNK, CYCLE (37 CYCLES)
     Route: 042
     Dates: start: 20160329
  8. LAPATINIB [Suspect]
     Active Substance: LAPATINIB
     Indication: INVASIVE DUCTAL BREAST CARCINOMA
     Dosage: UNK
     Route: 065
  9. CAPECITABINE. [Suspect]
     Active Substance: CAPECITABINE
     Indication: INVASIVE DUCTAL BREAST CARCINOMA
     Dosage: 19 CYCLES
     Route: 065
     Dates: start: 20160405, end: 20170420
  10. GEMCITABINE. [Suspect]
     Active Substance: GEMCITABINE
     Indication: INVASIVE DUCTAL BREAST CARCINOMA
     Dosage: UNK, CYCLE(6 CYCLES)
     Route: 065
     Dates: start: 20190515
  11. PACLITAXEL. [Suspect]
     Active Substance: PACLITAXEL
     Dosage: UNK, MONTHLY(1,8,15 REGIME EVERY 28 DAYS)
     Route: 065
     Dates: start: 20191023, end: 201911
  12. TRASTUZUMAB. [Suspect]
     Active Substance: TRASTUZUMAB
     Indication: INVASIVE DUCTAL BREAST CARCINOMA
     Dosage: UNK UNK, CYCLE(10 CYCLES WITH PXL)
     Route: 042
     Dates: start: 20140211
  13. PACLITAXEL. [Suspect]
     Active Substance: PACLITAXEL
     Dosage: UNK, CYCLE(10 CYCLES WITH TRASTUZUMAB)
     Route: 065
     Dates: start: 20140211
  14. CARBOPLATIN. [Suspect]
     Active Substance: CARBOPLATIN
     Indication: INVASIVE DUCTAL BREAST CARCINOMA
     Dosage: UNK(EVERY 7 DAYS, 12 CYCLES)
     Route: 065
     Dates: start: 20171023

REACTIONS (15)
  - Depressed mood [Unknown]
  - Gastric neoplasm [Unknown]
  - Oropharyngeal pain [Unknown]
  - Breast disorder [Unknown]
  - Hepatotoxicity [Unknown]
  - Temporomandibular joint syndrome [Unknown]
  - Herpes zoster [Unknown]
  - Neck pain [Unknown]
  - Soft tissue disorder [Unknown]
  - Dysphagia [Unknown]
  - Computerised tomogram thorax abnormal [Unknown]
  - Dizziness [Unknown]
  - Asthenia [Unknown]
  - Pain [Recovered/Resolved]
  - Blood pressure increased [Recovering/Resolving]

NARRATIVE: CASE EVENT DATE: 201712
